FAERS Safety Report 10730992 (Version 1)
Quarter: 2015Q1

REPORT INFORMATION
  Report Type: Spontaneous
  Country: US (occurrence: None)
  Receive Date: 20150120
  Receipt Date: 20150120
  Transmission Date: 20150721
  Serious: Yes (Other)
  Sender: FDA-Public Use
  Company Number: None

PATIENT
  Age: 47 Year
  Sex: Female
  Weight: 56.7 kg

DRUGS (3)
  1. FLUTICASONE PROPIONATE. [Suspect]
     Active Substance: FLUTICASONE PROPIONATE
     Indication: UPPER-AIRWAY COUGH SYNDROME
     Dosage: 2 SPRAYS, TWICE DAILY, INHALATION
     Route: 055
     Dates: start: 20111128, end: 20111128
  2. FLUTICASONE PROPIONATE. [Suspect]
     Active Substance: FLUTICASONE PROPIONATE
     Indication: NASOPHARYNGITIS
     Dosage: 2 SPRAYS, TWICE DAILY, INHALATION
     Route: 055
     Dates: start: 20111128, end: 20111128
  3. FLUTICASONE PROPIONATE. [Suspect]
     Active Substance: FLUTICASONE PROPIONATE
     Indication: INFLUENZA
     Dosage: 2 SPRAYS, TWICE DAILY, INHALATION
     Route: 055
     Dates: start: 20111128, end: 20111128

REACTIONS (4)
  - Vertigo [None]
  - Abasia [None]
  - Dysstasia [None]
  - Loss of consciousness [None]

NARRATIVE: CASE EVENT DATE: 20111128
